FAERS Safety Report 7556557-5 (Version None)
Quarter: 2011Q2

REPORT INFORMATION
  Report Type: 
  Country: None (occurrence: None)
  Receive Date: 20110620
  Receipt Date: 20110608
  Transmission Date: 20111010
  Serious: Yes (Hospitalization, Other)
  Sender: FDA-Public Use
  Company Number: US-ELI_LILLY_AND_COMPANY-US200909004113

PATIENT
  Sex: Female

DRUGS (15)
  1. DILTIAZEM [Concomitant]
  2. PLAVIX [Concomitant]
  3. LISINOPRIL [Concomitant]
  4. FORTEO [Suspect]
     Dosage: 20 UG, QD
     Route: 058
  5. SYNTHROID [Concomitant]
  6. VITAMIN D [Concomitant]
  7. GLIPIZIDE [Concomitant]
  8. ZETIA [Concomitant]
  9. METFORMIN HCL [Concomitant]
  10. ATIVAN [Concomitant]
  11. FORTEO [Suspect]
     Indication: OSTEOPOROSIS
     Dosage: 20 UG, QD
     Route: 058
     Dates: start: 20090801
  12. FORTEO [Suspect]
     Dosage: 20 UG, QD
     Route: 058
  13. CITALOPRAM [Concomitant]
  14. TRICOR [Concomitant]
  15. CALCIUM CARBONATE [Concomitant]

REACTIONS (4)
  - NASOPHARYNGITIS [None]
  - ASTHENIA [None]
  - FALL [None]
  - UPPER LIMB FRACTURE [None]
